FAERS Safety Report 13231825 (Version 3)
Quarter: 2017Q4

REPORT INFORMATION
  Report Type: Report from Study
  Country: US (occurrence: US)
  Receive Date: 20170214
  Receipt Date: 20171002
  Transmission Date: 20180320
  Serious: No
  Sender: FDA-Public Use
  Company Number: US-ARIAD PHARMACEUTICALS, INC-2017US007721

PATIENT
  Age: 29 Year
  Sex: Female

DRUGS (5)
  1. ICLUSIG [Suspect]
     Active Substance: PONATINIB
     Indication: CHRONIC MYELOID LEUKAEMIA
     Dosage: 45 MG, QD
     Route: 048
     Dates: start: 20170127
  2. ICLUSIG [Suspect]
     Active Substance: PONATINIB
     Dosage: 45 MG, QD
     Route: 048
  3. ICLUSIG [Suspect]
     Active Substance: PONATINIB
     Dosage: 45 MG, QD
     Route: 048
  4. ICLUSIG [Suspect]
     Active Substance: PONATINIB
     Dosage: 45 MG, QD
     Route: 048
  5. ICLUSIG [Suspect]
     Active Substance: PONATINIB
     Dosage: 30 MG, QD
     Route: 048
     Dates: start: 20170510

REACTIONS (16)
  - Pleuritic pain [Unknown]
  - Fatigue [Unknown]
  - Dizziness [Unknown]
  - Chest pain [Unknown]
  - Lung infection [Unknown]
  - Throat irritation [Unknown]
  - Vertigo [Unknown]
  - Neck pain [Unknown]
  - Rash [Unknown]
  - Back pain [Unknown]
  - Leukocytosis [Unknown]
  - Suprapubic pain [Unknown]
  - Insomnia [Unknown]
  - Urinary tract infection [Unknown]
  - Pyuria [Unknown]
  - Headache [Unknown]

NARRATIVE: CASE EVENT DATE: 20170320
